FAERS Safety Report 5152274-X (Version None)
Quarter: 2006Q4

REPORT INFORMATION
  Report Type: 
  Country: None (occurrence: None)
  Receive Date: 20061116
  Receipt Date: 20061113
  Transmission Date: 20070319
  Serious: Yes (Life-Threatening, Hospitalization)
  Sender: FDA-Public Use
  Company Number: PHFR2006GB03357

PATIENT
  Sex: Male

DRUGS (4)
  1. DICLOFENAC SODIUM [Suspect]
     Indication: ANALGESIC EFFECT
     Dosage: 50 MG, TID
     Route: 048
     Dates: start: 20061019, end: 20061024
  2. ACETAMINOPHEN [Suspect]
     Indication: ANALGESIC EFFECT
     Dosage: 1 G, QID
     Route: 048
  3. WARFARIN SODIUM [Suspect]
     Indication: DEEP VEIN THROMBOSIS
     Dosage: 5 MG / DAY
     Route: 048
     Dates: start: 20061020, end: 20061024
  4. CHEMOTHERAPEUTICS,OTHER [Concomitant]
     Indication: COLORECTAL CANCER
     Route: 065
     Dates: end: 20061005

REACTIONS (2)
  - DRUG INTERACTION [None]
  - INTERNATIONAL NORMALISED RATIO INCREASED [None]
